FAERS Safety Report 5411034-2 (Version None)
Quarter: 2007Q3

REPORT INFORMATION
  Report Type: 
  Country: None (occurrence: None)
  Receive Date: 20070713
  Receipt Date: 20070612
  Transmission Date: 20080115
  Serious: No
  Sender: FDA-Public Use
  Company Number: 2007SP002204

PATIENT
  Age: 39 Year
  Sex: Male
  Weight: 90.7194 kg

DRUGS (3)
  1. LUNESTA [Suspect]
     Indication: INSOMNIA
     Dosage: HS;ORAL
     Route: 048
     Dates: start: 20070607
  2. AMLODIPINE BESYLATE [Concomitant]
  3. NASONEX [Concomitant]

REACTIONS (4)
  - DIZZINESS [None]
  - GAIT DISTURBANCE [None]
  - NAUSEA [None]
  - VERTIGO [None]
